FAERS Safety Report 18312897 (Version 1)
Quarter: 2020Q3

REPORT INFORMATION
  Report Type: Spontaneous
  Country: NL (occurrence: NL)
  Receive Date: 20200925
  Receipt Date: 20200925
  Transmission Date: 20201103
  Serious: Yes (Other)
  Sender: FDA-Public Use
  Company Number: NL-MYLANLABS-2020M1080797

PATIENT
  Sex: Female
  Weight: 70 kg

DRUGS (2)
  1. SERTRALINE [Suspect]
     Active Substance: SERTRALINE HYDROCHLORIDE
     Indication: AGGRESSION
     Dosage: 100 MILLIGRAM, QD (1 MAAL DAAGS 1 STUK, 100 MG)
     Dates: start: 2018
  2. SERTRALINE [Suspect]
     Active Substance: SERTRALINE HYDROCHLORIDE
     Indication: DEPRESSION

REACTIONS (4)
  - Migraine [Not Recovered/Not Resolved]
  - Female orgasmic disorder [Not Recovered/Not Resolved]
  - Intentional self-injury [Not Recovered/Not Resolved]
  - Coital bleeding [Not Recovered/Not Resolved]
